FAERS Safety Report 4734223-9 (Version None)
Quarter: 2005Q3

REPORT INFORMATION
  Report Type: 
  Country: None (occurrence: None)
  Receive Date: 20050803
  Receipt Date: 20050803
  Transmission Date: 20060218
  Serious: Yes (Hospitalization)
  Sender: FDA-Public Use
  Company Number: None

PATIENT
  Age: 54 Year
  Sex: Male

DRUGS (2)
  1. SALSALATE [Suspect]
     Indication: HEADACHE
     Dosage: 1500 MG PO BID
     Route: 048
  2. ASPIRIN [Suspect]
     Indication: HEADACHE
     Dosage: 325 MG QD

REACTIONS (2)
  - CONFUSIONAL STATE [None]
  - DYSARTHRIA [None]
